FAERS Safety Report 17940688 (Version 2)
Quarter: 2022Q1

REPORT INFORMATION
  Report Type: Spontaneous
  Country: US (occurrence: US)
  Receive Date: 20200625
  Receipt Date: 20220316
  Transmission Date: 20220424
  Serious: Yes (Death, Other)
  Sender: FDA-Public Use
  Company Number: US-SAARTEMIS-SAC202006190257

PATIENT
  Age: 50 Year
  Sex: Male

DRUGS (1)
  1. ZANTAC [Suspect]
     Active Substance: RANITIDINE HYDROCHLORIDE
     Indication: Gastrooesophageal reflux disease
     Dosage: UNK UNK, QD
     Dates: start: 200601, end: 200901

REACTIONS (4)
  - Oesophageal carcinoma [Fatal]
  - Gastric cancer [Fatal]
  - Lymphoma [Fatal]
  - Disease progression [Fatal]

NARRATIVE: CASE EVENT DATE: 20130101
